FAERS Safety Report 8761707 (Version 2)
Quarter: 2012Q4

REPORT INFORMATION
  Report Type: Spontaneous
  Country: FI (occurrence: None)
  Receive Date: 20120822
  Receipt Date: 20120906
  Transmission Date: 20130627
  Serious: Yes (Death, Life-Threatening, Hospitalization)
  Sender: FDA-Public Use
  Company Number: FK201202425

PATIENT

DRUGS (9)
  1. FUROSEMIDE [Suspect]
     Indication: FOETAL EXPOSURE DURING PREGNANCY
     Dosage: 30 MG, Daily: Week of Pregnancy 27+6 (Mother), Transplacental
     Route: 064
  2. FUROSEMIDE [Suspect]
     Indication: FOETAL EXPOSURE DURING PREGNANCY
     Dosage: 10 MG, Daily: Week of Pregnancy 28+0, Transplacental
     Route: 064
  3. FUROSEMIDE [Suspect]
     Indication: FOETAL EXPOSURE DURING PREGNANCY
     Dosage: 40 MG, Daily: Week of Pregnancy 28+1, Transplacental
     Route: 064
  4. FUROSEMIDE [Suspect]
     Indication: FOETAL EXPOSURE DURING PREGNANCY
     Dosage: 10 MG, Daily: Week of Pregnancy 28+2, Transplacental
     Route: 064
  5. FUROSEMIDE [Suspect]
     Indication: FOETAL EXPOSURE DURING PREGNANCY
     Dosage: 10 MG, Daily: Week of Pregnancy 28+3, Transplacental
     Route: 064
  6. LABETALOL (LABETALOL) [Concomitant]
  7. PIVMECILLINAM (PIVMECILLINAM) [Concomitant]
  8. BETAMETASONE [Concomitant]
  9. NITROPRUSSIDE [Concomitant]

REACTIONS (8)
  - Caesarean section [None]
  - Death neonatal [None]
  - Placental insufficiency [None]
  - Maternal drugs affecting foetus [None]
  - Bradycardia foetal [None]
  - Premature separation of placenta [None]
  - Premature baby [None]
  - Haemorrhage in pregnancy [None]
